FAERS Safety Report 26036899 (Version 1)
Quarter: 2025Q4

REPORT INFORMATION
  Report Type: Spontaneous
  Country: US (occurrence: US)
  Receive Date: 20251112
  Receipt Date: 20251112
  Transmission Date: 20260117
  Serious: No
  Sender: PFIZER
  Company Number: US-PFIZER INC-202500221171

PATIENT
  Age: 50 Year
  Sex: Female

DRUGS (1)
  1. AROMASIN [Suspect]
     Active Substance: EXEMESTANE
     Dosage: UNK

REACTIONS (4)
  - Drug tolerance decreased [Unknown]
  - Vulvovaginal dryness [Unknown]
  - Affect lability [Unknown]
  - Hot flush [Unknown]
